FAERS Safety Report 5300153-7 (Version None)
Quarter: 2007Q1

REPORT INFORMATION
  Report Type: 
  Country: None (occurrence: None)
  Receive Date: 20070201
  Receipt Date: 20061011
  Transmission Date: 20070707
  Serious: No
  Sender: FDA-Public Use
  Company Number: 2006PV022954

PATIENT
  Age: 63 Year
  Sex: Female
  Weight: 127 kg

DRUGS (7)
  1. BYETTA [Suspect]
     Indication: DIABETES MELLITUS NON-INSULIN-DEPENDENT
     Dosage: SC
     Route: 058
     Dates: start: 20060901, end: 20060901
  2. AMARYL [Concomitant]
  3. LISINOPRIL [Concomitant]
  4. ACTOS [Concomitant]
  5. POTASSIUM CHLORIDE [Concomitant]
  6. PAXIL [Concomitant]
  7. APIDRA [Concomitant]

REACTIONS (2)
  - BLOOD GLUCOSE INCREASED [None]
  - ROAD TRAFFIC ACCIDENT [None]
